FAERS Safety Report 18030288 (Version 1)
Quarter: 2020Q3

REPORT INFORMATION
  Report Type: Spontaneous
  Country: US (occurrence: US)
  Receive Date: 20200715
  Receipt Date: 20200715
  Transmission Date: 20201103
  Serious: No
  Sender: FDA-Public Use
  Company Number: None

PATIENT
  Age: 28 Year
  Sex: Female
  Weight: 103.05 kg

DRUGS (2)
  1. INHALER [Concomitant]
     Active Substance: UNSPECIFIED INGREDIENT
  2. XULANE [Suspect]
     Active Substance: ETHINYL ESTRADIOL\NORELGESTROMIN
     Indication: CONTRACEPTION
     Dosage: ?          QUANTITY:3 PATCH(ES);OTHER FREQUENCY:ONCE A WEEK FOR 3;?
     Route: 061
     Dates: start: 20200626, end: 20200715

REACTIONS (3)
  - Menstruation irregular [None]
  - Complication associated with device [None]
  - Device leakage [None]

NARRATIVE: CASE EVENT DATE: 20200712
